FAERS Safety Report 8610473-6 (Version None)
Quarter: 2012Q3

REPORT INFORMATION
  Report Type: 
  Country: None (occurrence: None)
  Receive Date: 20120822
  Receipt Date: 20120815
  Transmission Date: 20120928
  Serious: No
  Sender: FDA-Public Use
  Company Number: US-PFIZER INC-2012200743

PATIENT
  Age: 67 Year
  Sex: Female

DRUGS (1)
  1. SUTENT [Suspect]
     Indication: RENAL CANCER
     Dosage: 37.5 MG, UNK
     Dates: start: 20120615, end: 20120724

REACTIONS (3)
  - DECREASED APPETITE [None]
  - DRUG INTOLERANCE [None]
  - MUCOSAL INFLAMMATION [None]
